FAERS Safety Report 8319476-2 (Version None)
Quarter: 2012Q2

REPORT INFORMATION
  Report Type: 
  Country: None (occurrence: None)
  Receive Date: 20120427
  Receipt Date: 20120416
  Transmission Date: 20120825
  Serious: Yes (Other)
  Sender: FDA-Public Use
  Company Number: ZA-JNJFOC-20120405216

PATIENT
  Sex: Female
  Weight: 49 kg

DRUGS (1)
  1. CONCERTA [Suspect]
     Indication: PRODUCT USED FOR UNKNOWN INDICATION
     Route: 048

REACTIONS (4)
  - OVERDOSE [None]
  - WEIGHT DECREASED [None]
  - EPILEPSY [None]
  - INTENTIONAL DRUG MISUSE [None]
